FAERS Safety Report 9220487 (Version 1)
Quarter: 2013Q1

REPORT INFORMATION
  Report Type: Spontaneous
  Country: US (occurrence: None)
  Receive Date: 20120831
  Receipt Date: 20120831
  Transmission Date: 20140127
  Serious: No
  Sender: FDA-Public Use
  Company Number: 1000031391

PATIENT
  Age: 65 Year
  Sex: Male

DRUGS (7)
  1. DALIRESP [Suspect]
     Indication: CHRONIC OBSTRUCTIVE PULMONARY DISEASE
     Dosage: 500 MCG (500 MCG, 1 IN 1 D), ORAL
     Route: 048
     Dates: start: 201206
  2. GABAPENTIN (GABAPENTIN) (GABAPENTIN) [Concomitant]
  3. AMITRIPTYLINE (AMITYIPTYLINE) (AMITRIPTYLINE) [Concomitant]
  4. CILOSTAZOL (CILOSTAZOL) (CILOSTAZOL) [Concomitant]
  5. SIMVASTATIN (SIMVASTATIN) (SIMVASTATIN) [Concomitant]
  6. METOPROLOL (METOPROLOL) (METOPROLOL) [Concomitant]
  7. GLYBURIDE(GLIBENCLAMIDE) (GLIBENCLAMIDE) [Concomitant]

REACTIONS (4)
  - Back pain [None]
  - Insomnia [None]
  - Pain in extremity [None]
  - Lower extremity mass [None]
